FAERS Safety Report 9209720 (Version 1)
Quarter: 2013Q1

REPORT INFORMATION
  Report Type: Spontaneous
  Country: US (occurrence: None)
  Receive Date: 20120820
  Receipt Date: 20120820
  Transmission Date: 20140127
  Serious: No
  Sender: FDA-Public Use
  Company Number: 1000030283

PATIENT
  Age: 55 Year
  Sex: Female

DRUGS (13)
  1. VIIBRYD [Suspect]
     Indication: DEPRESSION
     Dosage: 10 MG (10 MG, 1 IN 1 D, ORAL)
     Route: 048
     Dates: start: 20120418, end: 20120424
  2. ABILIFY (ARIPRAZOLE) (ARIPRAZOLE) [Concomitant]
  3. VERAPAMIL ER (VERAPMAIL) (VERAPAMIL) [Concomitant]
  4. SYNTHROID (LEVOTHYROXINE SODIUM) (LEVOTHYROXINE SODIUM) [Concomitant]
  5. GABAPENTIN (GABAPENTIN) (GABAPENTIN) [Concomitant]
  6. WELLBUTRIN (BUPROPION HYDROCHLORIDE) (BUPROPION HYDROCHLORIDE) [Concomitant]
  7. DETROL (TOTERODINE L-TARTRATE) (TOLTERODINE L-TARTRATE) [Concomitant]
  8. TRIHEXPHENIDYL (TRIHEXYPHENIDYL) (TRIHEXYPHENIDYL) [Concomitant]
  9. HYDROCHLOROTHIAZIDE (HYDROCHLOROTHIAZIDE) (HYDROCHLOROTHIAZIDE) [Concomitant]
  10. TOPAMAX (TOPIRAMATE) (TOPIRAMATE) [Concomitant]
  11. ISOSORBIDE (ISOSORBIDE) (ISOSOPRIDE) [Concomitant]
  12. VENTOLIN [Concomitant]
  13. SYMBICORT [Concomitant]

REACTIONS (1)
  - Contusion [None]
